FAERS Safety Report 9090944 (Version 1)
Quarter: 2013Q1

REPORT INFORMATION
  Report Type: Report from Study
  Country: US (occurrence: US)
  Receive Date: 20130201
  Receipt Date: 20130201
  Transmission Date: 20140127
  Serious: No
  Sender: FDA-Public Use
  Company Number: US-ABBOTT-12P-163-1029407-00

PATIENT
  Sex: Male

DRUGS (3)
  1. HUMIRA [Suspect]
     Indication: ANKYLOSING SPONDYLITIS
     Route: 058
     Dates: start: 20090919
  2. UNKNOWN MEDICATION [Concomitant]
     Indication: HYPERTENSION
  3. CELEBREX [Concomitant]
     Indication: ARTHRITIS

REACTIONS (1)
  - Sinusitis [Not Recovered/Not Resolved]
